FAERS Safety Report 9196296 (Version 1)
Quarter: 2013Q1

REPORT INFORMATION
  Report Type: Report from Study
  Country: CA (occurrence: CA)
  Receive Date: 20130328
  Receipt Date: 20130328
  Transmission Date: 20140127
  Serious: Yes (Hospitalization)
  Sender: FDA-Public Use
  Company Number: CA-JNJFOC-20130314422

PATIENT
  Sex: Female

DRUGS (1)
  1. STELARA [Suspect]
     Indication: CROHN^S DISEASE
     Dates: start: 20130206

REACTIONS (2)
  - Surgery [Unknown]
  - Off label use [Unknown]
